FAERS Safety Report 11393421 (Version 1)
Quarter: 2015Q3

REPORT INFORMATION
  Report Type: Spontaneous
  Country: US (occurrence: US)
  Receive Date: 20150818
  Receipt Date: 20150818
  Transmission Date: 20151125
  Serious: No
  Sender: FDA-Public Use
  Company Number: US-CELGENEUS-USA-2015033306

PATIENT
  Sex: Male
  Weight: 90.8 kg

DRUGS (6)
  1. REVLIMID [Suspect]
     Active Substance: LENALIDOMIDE
     Route: 048
     Dates: start: 201411, end: 201505
  2. DEXAMETHASONE. [Concomitant]
     Active Substance: DEXAMETHASONE
     Indication: PLASMA CELL MYELOMA
     Route: 065
  3. LYRICA [Concomitant]
     Active Substance: PREGABALIN
     Indication: PRODUCT USED FOR UNKNOWN INDICATION
     Route: 065
  4. REVLIMID [Suspect]
     Active Substance: LENALIDOMIDE
     Indication: PLASMA CELL MYELOMA
     Route: 048
     Dates: start: 201302, end: 2013
  5. REVLIMID [Suspect]
     Active Substance: LENALIDOMIDE
     Route: 048
     Dates: start: 201401, end: 2014
  6. CELEBREX [Concomitant]
     Active Substance: CELECOXIB
     Indication: NEUROPATHY PERIPHERAL
     Route: 065

REACTIONS (7)
  - Weight increased [Recovered/Resolved]
  - Neuropathy peripheral [Unknown]
  - Monoclonal immunoglobulin present [Unknown]
  - Insomnia [Recovered/Resolved]
  - Erectile dysfunction [Unknown]
  - Nausea [Recovered/Resolved]
  - Hypoaesthesia [Recovered/Resolved]
